FAERS Safety Report 9308757 (Version 2)
Quarter: 2013Q3

REPORT INFORMATION
  Report Type: Spontaneous
  Country: US (occurrence: US)
  Receive Date: 20130524
  Receipt Date: 20130802
  Transmission Date: 20140515
  Serious: Yes (Hospitalization)
  Sender: FDA-Public Use
  Company Number: US-OPTIMER-20130171

PATIENT
  Age: 67 Year
  Sex: Male

DRUGS (3)
  1. FIDAXOMICIN [Suspect]
     Indication: CLOSTRIDIUM DIFFICILE COLITIS
     Dosage: UNK
     Dates: start: 20130212, end: 20130215
  2. BUSULFAN [Concomitant]
     Indication: CHEMOTHERAPY
  3. ETOPOSIDE [Concomitant]
     Indication: CHEMOTHERAPY

REACTIONS (3)
  - Clostridium difficile colitis [Unknown]
  - Disease recurrence [Unknown]
  - Neutrophil count decreased [Unknown]
